FAERS Safety Report 5223761-0 (Version None)
Quarter: 2007Q1

REPORT INFORMATION
  Report Type: 
  Country: None (occurrence: None)
  Receive Date: 20070130
  Receipt Date: 20070119
  Transmission Date: 20070707
  Serious: Yes (Hospitalization, Other)
  Sender: FDA-Public Use
  Company Number: GB-JNJFOC-20070105061

PATIENT
  Sex: Female
  Weight: 70 kg

DRUGS (11)
  1. REMICADE [Suspect]
     Indication: RHEUMATOID ARTHRITIS
     Route: 042
  2. METHOTREXATE [Concomitant]
  3. DOCUSATE SODIUM [Concomitant]
  4. FOLIC ACID [Concomitant]
  5. FRUSEMIDE [Concomitant]
  6. MST [Concomitant]
  7. OMEPRAZOLE [Concomitant]
  8. PLAQUENIL [Concomitant]
  9. QUININE SULFATE [Concomitant]
  10. SENNA [Concomitant]
  11. TEMAZEPAM [Concomitant]

REACTIONS (5)
  - BACK PAIN [None]
  - CHEST PAIN [None]
  - LOSS OF CONSCIOUSNESS [None]
  - MALAISE [None]
  - PAIN IN EXTREMITY [None]
